FAERS Safety Report 4974772-1 (Version None)
Quarter: 2006Q2

REPORT INFORMATION
  Report Type: 
  Country: None (occurrence: None)
  Receive Date: 20060417
  Receipt Date: 20060407
  Transmission Date: 20061013
  Serious: Yes (Hospitalization, Disabling)
  Sender: FDA-Public Use
  Company Number: US-MERCK-0604USA01931

PATIENT
  Age: 54 Year
  Sex: Female
  Weight: 61 kg

DRUGS (4)
  1. VIOXX [Suspect]
     Indication: ARTHRALGIA
     Route: 048
     Dates: start: 20010807, end: 20011105
  2. PREMARIN [Concomitant]
     Route: 065
     Dates: start: 19930101
  3. PRILOSEC [Concomitant]
     Route: 048
  4. PREVACID [Concomitant]
     Route: 065
     Dates: start: 20010801

REACTIONS (2)
  - CEREBROVASCULAR ACCIDENT [None]
  - DIABETES MELLITUS [None]
